FAERS Safety Report 18910794 (Version 3)
Quarter: 2021Q1

REPORT INFORMATION
  Report Type: Report from Study
  Country: IL (occurrence: IL)
  Receive Date: 20210218
  Receipt Date: 20210320
  Transmission Date: 20210420
  Serious: Yes (Hospitalization)
  Sender: FDA-Public Use
  Company Number: NVSC2021IL037992

PATIENT
  Age: 89 Year
  Sex: Male

DRUGS (4)
  1. TAFINLAR [Suspect]
     Active Substance: DABRAFENIB MESYLATE
     Dosage: 150 MG+75MG, BID
     Route: 048
     Dates: start: 20210224, end: 20210225
  2. MEKINIST [Suspect]
     Active Substance: TRAMETINIB DIMETHYL SULFOXIDE
     Dosage: 2 MG, QD
     Route: 048
     Dates: start: 20210224, end: 20210225
  3. MEKINIST [Suspect]
     Active Substance: TRAMETINIB DIMETHYL SULFOXIDE
     Indication: MALIGNANT MELANOMA
     Dosage: 2 MG, QD
     Route: 048
     Dates: start: 20210208, end: 20210221
  4. TAFINLAR [Suspect]
     Active Substance: DABRAFENIB MESYLATE
     Indication: MALIGNANT MELANOMA
     Dosage: 150 MG, BID
     Route: 048
     Dates: start: 20210208, end: 20210221

REACTIONS (26)
  - C-reactive protein increased [Recovering/Resolving]
  - Blood sodium decreased [Recovered/Resolved]
  - Inappropriate schedule of product administration [Unknown]
  - Urinary incontinence [Not Recovered/Not Resolved]
  - Loss of consciousness [Recovered/Resolved]
  - Cerebral haemorrhage [Not Recovered/Not Resolved]
  - Blood creatinine increased [Recovered/Resolved]
  - Asthenia [Recovering/Resolving]
  - Blood lactate dehydrogenase increased [Recovering/Resolving]
  - Dysstasia [Unknown]
  - Back pain [Not Recovered/Not Resolved]
  - Fall [Recovered/Resolved]
  - Dizziness [Recovering/Resolving]
  - Arthralgia [Not Recovered/Not Resolved]
  - Blood urea increased [Recovering/Resolving]
  - Hemiplegia [Not Recovered/Not Resolved]
  - Blood pressure increased [Recovering/Resolving]
  - Dehydration [Recovering/Resolving]
  - Malignant melanoma [Not Recovered/Not Resolved]
  - Metastases to central nervous system [Unknown]
  - Malignant neoplasm progression [Not Recovered/Not Resolved]
  - Pyrexia [Recovered/Resolved]
  - Chills [Recovered/Resolved]
  - Product use complaint [Not Recovered/Not Resolved]
  - Anal incontinence [Unknown]
  - Incorrect dose administered [Unknown]

NARRATIVE: CASE EVENT DATE: 20210208
